FAERS Safety Report 9377302 (Version 2)
Quarter: 2013Q3

REPORT INFORMATION
  Report Type: Report from Study
  Country: BE (occurrence: BE)
  Receive Date: 20130701
  Receipt Date: 20130722
  Transmission Date: 20140515
  Serious: Yes (Hospitalization)
  Sender: FDA-Public Use
  Company Number: BE-BIOGENIDEC-2013BI050979

PATIENT
  Age: 54 Year
  Sex: Female

DRUGS (6)
  1. TYSABRI [Suspect]
     Indication: RELAPSING-REMITTING MULTIPLE SCLEROSIS
     Route: 042
     Dates: start: 20101124, end: 20121121
  2. VESICARE [Concomitant]
  3. LIORESAL [Concomitant]
  4. TEVETEN [Concomitant]
  5. WELLBUTRIN [Concomitant]
  6. LOPRESSOR [Concomitant]

REACTIONS (3)
  - Gastrooesophageal reflux disease [Recovered/Resolved]
  - Escherichia urinary tract infection [Recovered/Resolved]
  - Constipation [Recovered/Resolved]
